FAERS Safety Report 8923571 (Version 2)
Quarter: 2013Q2

REPORT INFORMATION
  Report Type: Report from Study
  Country: AU (occurrence: AU)
  Receive Date: 20121123
  Receipt Date: 20130502
  Transmission Date: 20140414
  Serious: Yes (Other)
  Sender: FDA-Public Use
  Company Number: PHHY2012AU106099

PATIENT
  Age: 79 Year
  Sex: Female
  Weight: 73 kg

DRUGS (9)
  1. ACLASTA [Suspect]
     Dosage: 5 MG, UNK
     Route: 042
     Dates: start: 20091204
  2. ACLASTA [Suspect]
     Dosage: 5 MG, UNK
     Route: 042
     Dates: start: 20101203
  3. ACLASTA [Suspect]
     Dosage: 5 MG, UNK
     Route: 042
     Dates: start: 20111216
  4. ARICEPT [Concomitant]
     Dosage: 5 MG, MANE
  5. CARTIA [Concomitant]
     Dosage: 100 MG, UNK
  6. CRESTOR [Concomitant]
     Dosage: 5 MG, UNK
  7. SOTALOL [Concomitant]
     Dosage: 40 MG, BID
  8. ZOLOFT [Concomitant]
     Dosage: 100 MG, MANE
  9. CELEBREX [Concomitant]
     Dosage: 200 MG, UNK

REACTIONS (5)
  - Fall [Unknown]
  - Upper limb fracture [Not Recovered/Not Resolved]
  - Wrist fracture [Unknown]
  - Injury [Unknown]
  - Pain [Unknown]
